FAERS Safety Report 8610383-4 (Version None)
Quarter: 2012Q3

REPORT INFORMATION
  Report Type: 
  Country: None (occurrence: None)
  Receive Date: 20120822
  Receipt Date: 20120820
  Transmission Date: 20120928
  Serious: Yes (Death)
  Sender: FDA-Public Use
  Company Number: PHEH2012US013786

PATIENT
  Sex: Male
  Weight: 64.308 kg

DRUGS (6)
  1. DULCOLAX [Concomitant]
     Dosage: 5 MG, UNK
     Route: 065
  2. LOPRESSOR [Concomitant]
     Dosage: 100 MG, UNK
     Route: 065
  3. VICODIN HP [Concomitant]
     Dosage: 10-660 MG
     Route: 065
  4. GLEEVEC [Suspect]
     Dosage: 400 MG, DAILY
     Route: 048
  5. FUROSEMIDE [Concomitant]
     Dosage: 20 MG, UNK
     Route: 065
  6. ONDANSETRON [Concomitant]
     Dosage: 24 MG, UNK
     Route: 065

REACTIONS (2)
  - NEOPLASM MALIGNANT [None]
  - NEOPLASM PROGRESSION [None]
